FAERS Safety Report 7092527-1 (Version None)
Quarter: 2010Q4

REPORT INFORMATION
  Report Type: 
  Country: None (occurrence: None)
  Receive Date: 20101110
  Receipt Date: 20100609
  Transmission Date: 20110411
  Serious: Yes (Hospitalization, Other)
  Sender: FDA-Public Use
  Company Number: US-BAYER-200941648NA

PATIENT
  Age: 43 Year
  Sex: Female
  Weight: 59 kg

DRUGS (11)
  1. YAZ [Suspect]
     Indication: MENSTRUAL CYCLE MANAGEMENT
     Route: 048
     Dates: start: 20070901, end: 20071231
  2. YASMIN [Suspect]
     Indication: MENSTRUAL CYCLE MANAGEMENT
     Route: 048
     Dates: start: 20070901, end: 20071231
  3. OCELLA [Suspect]
     Indication: MENSTRUAL CYCLE MANAGEMENT
     Route: 048
     Dates: start: 20070901, end: 20071231
  4. ASMANEX TWISTHALER [Concomitant]
     Dates: start: 20050101
  5. PREDNISONE [Concomitant]
     Indication: INFLAMMATION
     Dosage: TOTAL DAILY DOSE: 40 MG  UNIT DOSE: 20 MG
     Dates: start: 20071219, end: 20071228
  6. MULTI-VITAMIN [Concomitant]
  7. IBUPROFEN [Concomitant]
  8. ASTHMA MEDICATIONS [Concomitant]
     Indication: ASTHMA
     Dates: start: 20050101
  9. ASCORBIC ACID [Concomitant]
     Dosage: INTERMITTENTLY MANY YEARS
  10. ANTIBIOTICS [Concomitant]
  11. ZYRTEC [Concomitant]
     Dates: start: 20020101

REACTIONS (10)
  - ANXIETY [None]
  - DEEP VEIN THROMBOSIS [None]
  - DYSPNOEA [None]
  - ERYTHEMA [None]
  - LOWER EXTREMITY MASS [None]
  - PAIN IN EXTREMITY [None]
  - PLEURITIC PAIN [None]
  - PULMONARY EMBOLISM [None]
  - SKIN WARM [None]
  - THROMBOSIS [None]
